FAERS Safety Report 9508677 (Version 1)
Quarter: 2013Q1

REPORT INFORMATION
  Report Type: Spontaneous
  Country: US (occurrence: None)
  Receive Date: 20130305
  Receipt Date: 20130305
  Transmission Date: 20140127
  Serious: No
  Sender: FDA-Public Use
  Company Number: 163-21880-12090716

PATIENT
  Age: 70 Year
  Sex: Female
  Weight: 49.9 kg

DRUGS (10)
  1. REVLIMID [Suspect]
     Indication: PLASMA CELL MYELOMA
     Dosage: 5MG, 28 IN 28D, PO
     Route: 048
     Dates: start: 20120110
  2. ASPIRIN (ACETYLSALICYLIC ACID) [Concomitant]
  3. CALCIUM CARBONATE (CALCIUM CARBONATE) [Concomitant]
  4. COREG (CARVEDILOL) [Concomitant]
  5. EPOGEN (EPOETIN ALFA) [Concomitant]
  6. LIPITOR (ATORVASTATIN) [Concomitant]
  7. LISINOPRIL (LISINOPRIL) [Concomitant]
  8. NEPHRO-VITE (DIALYVITE 3000) [Concomitant]
  9. PRILOSEC [Concomitant]
  10. VITAMIN D [Concomitant]

REACTIONS (3)
  - Micturition urgency [None]
  - Urine abnormality [None]
  - Dysuria [None]
